FAERS Safety Report 24069530 (Version 1)
Quarter: 2024Q3

REPORT INFORMATION
  Report Type: Spontaneous
  Country: CN (occurrence: CN)
  Receive Date: 20240710
  Receipt Date: 20240710
  Transmission Date: 20241016
  Serious: No
  Sender: ROCHE
  Company Number: CN-ROCHE-3466110

PATIENT
  Sex: Female

DRUGS (2)
  1. ALECENSA [Suspect]
     Active Substance: ALECTINIB HYDROCHLORIDE
     Indication: Lung adenocarcinoma
     Route: 048
  2. CRIZOTINIB [Concomitant]
     Active Substance: CRIZOTINIB
     Indication: Lung adenocarcinoma
     Route: 048
     Dates: start: 2018

REACTIONS (3)
  - Oedema peripheral [Unknown]
  - Weight increased [Unknown]
  - Central nervous system lesion [Recovering/Resolving]
